FAERS Safety Report 9281674 (Version 5)
Quarter: 2014Q1

REPORT INFORMATION
  Report Type: Spontaneous
  Country: US (occurrence: US)
  Receive Date: 20130509
  Receipt Date: 20140124
  Transmission Date: 20141002
  Serious: Yes (Hospitalization, Other)
  Sender: FDA-Public Use
  Company Number: US-009507513-1305USA002798

PATIENT
  Sex: Female
  Weight: 58.5 kg

DRUGS (5)
  1. FOSAMAX [Suspect]
     Indication: OSTEOPOROSIS
     Dosage: 70 MG, QW
     Route: 048
     Dates: start: 19970515
  2. FOSAMAX [Suspect]
     Dosage: 10 MG, UNK
     Route: 048
     Dates: start: 19980615
  3. FOSAMAX [Suspect]
     Dosage: 70 MG, QW
     Route: 048
     Dates: start: 20030210
  4. TOPROL XL TABLETS [Concomitant]
     Indication: HYPERTENSION
     Dosage: 25 MG, QD
     Dates: start: 200309, end: 200701
  5. CAPTOPRIL [Concomitant]
     Indication: HYPERTENSION
     Dosage: UNK
     Dates: start: 199909, end: 200903

REACTIONS (56)
  - Intramedullary rod insertion [Unknown]
  - Humerus fracture [Unknown]
  - Intramedullary rod insertion [Unknown]
  - Cholecystectomy [Unknown]
  - Hospitalisation [Unknown]
  - Fall [Unknown]
  - Surgery [Unknown]
  - Joint injury [Unknown]
  - Bacterial infection [Unknown]
  - Compression fracture [Not Recovered/Not Resolved]
  - Vertebroplasty [Unknown]
  - Metastatic neoplasm [Unknown]
  - Vomiting [Unknown]
  - Nausea [Unknown]
  - Femur fracture [Unknown]
  - Femur fracture [Unknown]
  - Low turnover osteopathy [Unknown]
  - Hyperthyroidism [Unknown]
  - Pain [Unknown]
  - Pain [Unknown]
  - Hypokalaemia [Unknown]
  - Bacterial infection [Unknown]
  - Infection [Unknown]
  - Conjunctivitis [Unknown]
  - Vitamin D deficiency [Unknown]
  - Soft tissue neoplasm [Unknown]
  - Fall [Unknown]
  - Ligament sprain [Unknown]
  - Exostosis [Unknown]
  - Osteoarthritis [Unknown]
  - Osteoarthritis [Unknown]
  - Osteopenia [Unknown]
  - Hypothyroidism [Unknown]
  - Appendicectomy [Unknown]
  - Hysterectomy [Unknown]
  - Salpingo-oophorectomy bilateral [Unknown]
  - White blood cell count increased [Unknown]
  - Haematoma [Unknown]
  - Tonsillectomy [Unknown]
  - Adenoidectomy [Unknown]
  - Lipoma [Unknown]
  - Spinal osteoarthritis [Unknown]
  - Spondylolisthesis [Unknown]
  - Spinal cord compression [Not Recovered/Not Resolved]
  - Arthritis [Unknown]
  - Scapula fracture [Unknown]
  - Spinal compression fracture [Not Recovered/Not Resolved]
  - Osteoarthritis [Unknown]
  - Lumbar spinal stenosis [Unknown]
  - Heart rate irregular [Unknown]
  - Blood cholesterol increased [Unknown]
  - Anaemia [Unknown]
  - Pain in extremity [Unknown]
  - Hypocalcaemia [Unknown]
  - Diarrhoea [Unknown]
  - Nausea [Unknown]
